FAERS Safety Report 22687885 (Version 7)
Quarter: 2025Q2

REPORT INFORMATION
  Report Type: Report from Study
  Country: BR (occurrence: BR)
  Receive Date: 20230710
  Receipt Date: 20250424
  Transmission Date: 20250716
  Serious: Yes (Death, Other)
  Sender: TAKEDA
  Company Number: BR-TAKEDA-BR202001362

PATIENT
  Age: 33 Year
  Sex: Male
  Weight: 54 kg

DRUGS (9)
  1. HEMO-8R [Suspect]
     Active Substance: ANTIHEMOPHILIC FACTOR, HUMAN RECOMBINANT
     Indication: Factor VIII deficiency
  2. HEMO-8R [Suspect]
     Active Substance: ANTIHEMOPHILIC FACTOR, HUMAN RECOMBINANT
     Indication: Prophylaxis
     Dosage: 1000 INTERNATIONAL UNIT, 3/WEEK
     Dates: end: 20230708
  3. HEMO-8R [Suspect]
     Active Substance: ANTIHEMOPHILIC FACTOR, HUMAN RECOMBINANT
     Dosage: 500 INTERNATIONAL UNIT
  4. HEMO-8R [Suspect]
     Active Substance: ANTIHEMOPHILIC FACTOR, HUMAN RECOMBINANT
     Dosage: 1500 INTERNATIONAL UNIT, 3/WEEK
  5. DIPYRONE [Concomitant]
     Active Substance: DIPYRONE
     Indication: Pain
     Dosage: 2 DOSAGE FORM, Q8HR
  6. ACETAMINOPHEN [Concomitant]
     Active Substance: ACETAMINOPHEN
     Indication: Arthralgia
  7. DIAZEPAM [Concomitant]
     Active Substance: DIAZEPAM
     Dosage: 10 MILLIGRAM, QD
  8. DIAZEPAM [Concomitant]
     Active Substance: DIAZEPAM
     Dosage: 5 MILLIGRAM, QD
  9. TRANSAMIN [Concomitant]
     Active Substance: TRANEXAMIC ACID
     Dosage: 2 DOSAGE FORM, Q8HR

REACTIONS (17)
  - Death [Fatal]
  - Haemorrhage [Unknown]
  - Peripheral swelling [Recovered/Resolved with Sequelae]
  - Poor venous access [Unknown]
  - Arthropathy [Recovered/Resolved with Sequelae]
  - Movement disorder [Unknown]
  - Product availability issue [Unknown]
  - Accident [Unknown]
  - Fall [Recovering/Resolving]
  - Gait disturbance [Unknown]
  - Road traffic accident [Unknown]
  - Arthralgia [Recovering/Resolving]
  - Injury [Unknown]
  - Treatment noncompliance [Unknown]
  - Skin abrasion [Recovering/Resolving]
  - Joint range of motion decreased [Unknown]
  - Oedema peripheral [Unknown]

NARRATIVE: CASE EVENT DATE: 20200102
